FAERS Safety Report 8285873 (Version 3)
Quarter: 2012Q4

REPORT INFORMATION
  Report Type: Spontaneous
  Country: US (occurrence: None)
  Receive Date: 20111207
  Receipt Date: 20120925
  Transmission Date: 20130627
  Serious: Yes (Death)
  Sender: FDA-Public Use
  Company Number: JPI-P-018470

PATIENT
  Age: 54 Year
  Sex: Male

DRUGS (7)
  1. XYREM [Suspect]
     Indication: SLEEP DISORDER
     Dosage: 6 GM (3 GM, 2 IN 1 D) ORAL, 4 GM (2 GM, 2 IN 1 D) ORAL, 6 GM (3 GM, 2 IN 1 D) ORAL, 4 GM (2 GM, 2 IN
     Route: 048
     Dates: start: 20100309
  2. XYREM [Suspect]
     Indication: SLEEP DISORDER
     Dosage: 6 GM (3 GM, 2 IN 1 D) ORAL, 4 GM (2 GM, 2 IN 1 D) ORAL, 6 GM (3 GM, 2 IN 1 D) ORAL, 4 GM (2 GM, 2 IN
     Route: 048
     Dates: start: 20110107, end: 2011
  3. XYREM [Suspect]
     Indication: SLEEP DISORDER
     Dosage: 6 GM (3 GM, 2 IN 1 D) ORAL, 4 GM (2 GM, 2 IN 1 D) ORAL, 6 GM (3 GM, 2 IN 1 D) ORAL, 4 GM (2 GM, 2 IN
     Route: 048
     Dates: start: 20110211, end: 2011
  4. XYREM [Suspect]
     Indication: SLEEP DISORDER
     Dosage: 6 GM (3 GM, 2 IN 1 D) ORAL, 4 GM (2 GM, 2 IN 1 D) ORAL, 6 GM (3 GM, 2 IN 1 D) ORAL, 4 GM (2 GM, 2 IN
     Route: 048
     Dates: start: 20110805, end: 20111103
  5. OPIOID [Suspect]
     Indication: DRUG USE FOR UNKNOWN INDICATION
  6. OXYMORPHONE HYDROCHLORIDE [Concomitant]
  7. CLONAZEPAM [Concomitant]

REACTIONS (11)
  - Overdose [None]
  - Sleep disorder [None]
  - Pallor [None]
  - Night sweats [None]
  - Fatigue [None]
  - Feeling abnormal [None]
  - Somnambulism [None]
  - Disorientation [None]
  - Oedema peripheral [None]
  - Cognitive disorder [None]
  - Diarrhoea [None]
